FAERS Safety Report 20060929 (Version 1)
Quarter: 2021Q4

REPORT INFORMATION
  Report Type: Spontaneous
  Country: GB (occurrence: GB)
  Receive Date: 20211112
  Receipt Date: 20211112
  Transmission Date: 20220303
  Serious: Yes (Other)
  Sender: FDA-Public Use
  Company Number: GB-002147023-NVSC2021GB232738

PATIENT
  Age: 41 Year
  Sex: Female

DRUGS (3)
  1. LETROZOLE [Suspect]
     Active Substance: LETROZOLE
     Indication: Breast cancer
     Dosage: UNK UNK, QD
     Route: 048
     Dates: start: 2015
  2. VINORELBINE [Suspect]
     Active Substance: VINORELBINE TARTRATE
     Indication: Breast cancer
     Dosage: UNK (2 OUT OF EVERY 3 WEEKS) TABLET
     Route: 048
     Dates: start: 2020
  3. TAMOXIFEN [Suspect]
     Active Substance: TAMOXIFEN
     Indication: Breast cancer
     Dosage: UNK
     Route: 065

REACTIONS (10)
  - Constipation [Unknown]
  - Diarrhoea [Unknown]
  - Alopecia [Unknown]
  - Drug ineffective [Unknown]
  - Nausea [Not Recovered/Not Resolved]
  - Red blood cell count decreased [Recovering/Resolving]
  - Mood altered [Unknown]
  - Emotional disorder [Unknown]
  - Breast cancer [Unknown]
  - Malignant neoplasm progression [Unknown]
